FAERS Safety Report 7399145-6 (Version None)
Quarter: 2011Q1

REPORT INFORMATION
  Report Type: 
  Country: None (occurrence: None)
  Receive Date: 20110328
  Receipt Date: 20110318
  Transmission Date: 20110831
  Serious: Yes (Hospitalization)
  Sender: FDA-Public Use
  Company Number: 029609

PATIENT
  Sex: Male

DRUGS (13)
  1. KEPPRA [Suspect]
     Dosage: 2000 MG, 20 TABLETS ORAL
     Route: 048
     Dates: start: 20110126, end: 20110130
  2. PEPTAZOL /01263202/ [Concomitant]
  3. XANAX [Concomitant]
  4. RAMIPRIL [Suspect]
     Dosage: 10 MG, 5MG TABLET; 14 TABLETS ORAL
     Route: 048
     Dates: start: 20100131, end: 20110130
  5. PLAVIX [Concomitant]
  6. CIPRALEX /01588501/ (CIPRALEX) [Suspect]
     Dates: start: 20100130, end: 20110131
  7. CRESTOR [Concomitant]
  8. CARVEDILOL [Suspect]
     Dosage: 12.5 MG ORAL
     Route: 048
     Dates: start: 20100131, end: 20110130
  9. NORVASC [Suspect]
     Dates: start: 20100130, end: 20110131
  10. TICLOPIDINE HCL [Concomitant]
  11. METFORMIN HCL [Concomitant]
  12. ALLOPURINOL [Concomitant]
  13. ACTOPLUS MET [Concomitant]

REACTIONS (2)
  - HYPOTENSION [None]
  - SYNCOPE [None]
